FAERS Safety Report 6233337-4 (Version None)
Quarter: 2009Q2

REPORT INFORMATION
  Report Type: 
  Country: None (occurrence: None)
  Receive Date: 20090616
  Receipt Date: 20090616
  Transmission Date: 20091009
  Serious: Yes (Other)
  Sender: FDA-Public Use
  Company Number: None

PATIENT
  Age: 75 Year
  Sex: Female
  Weight: 81.1939 kg

DRUGS (1)
  1. AZULFIDINE  (GENERIC) 500MG UNKNOWN [Suspect]
     Indication: RHEUMATOID ARTHRITIS
     Dosage: 2 TABLETS TWICE DAILY ORAL
     Route: 048
     Dates: start: 20080901, end: 20081001

REACTIONS (2)
  - PRODUCT SUBSTITUTION ISSUE [None]
  - RASH [None]
